FAERS Safety Report 21453197 (Version 2)
Quarter: 2023Q1

REPORT INFORMATION
  Report Type: Report from Study
  Country: US (occurrence: US)
  Receive Date: 20221013
  Receipt Date: 20230201
  Transmission Date: 20230417
  Serious: No
  Sender: FDA-Public Use
  Company Number: US-ABBVIE-4141912

PATIENT
  Sex: Male

DRUGS (5)
  1. SKYRIZI [Suspect]
     Active Substance: RISANKIZUMAB-RZAA
     Indication: Psoriasis
     Dosage: LAST ADMIN DATE: SEP 2022
     Route: 058
     Dates: start: 20220914
  2. SKYRIZI [Suspect]
     Active Substance: RISANKIZUMAB-RZAA
     Route: 058
  3. PFIZER-BIONTECH COVID-19 VACCINE [Concomitant]
     Active Substance: TOZINAMERAN
     Indication: COVID-19 immunisation
     Dosage: FIRST DOSE, ONE IN ONCE
     Route: 030
     Dates: start: 20211214, end: 20211214
  4. PFIZER-BIONTECH COVID-19 VACCINE [Concomitant]
     Active Substance: TOZINAMERAN
     Indication: COVID-19 immunisation
     Dosage: SECOND DOSE, ONE IN ONCE
     Route: 030
     Dates: start: 20220105, end: 20220105
  5. PFIZER-BIONTECH COVID-19 VACCINE [Concomitant]
     Active Substance: TOZINAMERAN
     Indication: COVID-19 immunisation
     Dosage: BOOSTER DOSE, ONE IN ONCE
     Route: 030
     Dates: start: 20220330, end: 20220330

REACTIONS (5)
  - Rhinorrhoea [Unknown]
  - Fatigue [Not Recovered/Not Resolved]
  - Pain [Not Recovered/Not Resolved]
  - Memory impairment [Not Recovered/Not Resolved]
  - Illness [Unknown]
